FAERS Safety Report 13164511 (Version 1)
Quarter: 2017Q1

REPORT INFORMATION
  Report Type: Spontaneous
  Country: US (occurrence: US)
  Receive Date: 20170130
  Receipt Date: 20170130
  Transmission Date: 20170428
  Serious: Yes (Other)
  Sender: FDA-Public Use
  Company Number: US-ABBVIE-16P-163-1689591-00

PATIENT
  Age: 67 Year
  Sex: Male

DRUGS (8)
  1. FLUOXETINE (NON-ABBVIE) [Concomitant]
     Indication: DEPRESSION
     Route: 065
  2. LIPITOR (NON-ABBVIE) [Concomitant]
     Indication: BLOOD CHOLESTEROL INCREASED
     Route: 065
  3. LUPRON DEPOT [Suspect]
     Active Substance: LEUPROLIDE ACETATE
     Indication: PROSTATE CANCER
     Route: 030
     Dates: start: 20160514
  4. BUSPAR  (NON-ABBVIE) [Concomitant]
     Indication: ANXIETY
     Route: 065
  5. ABILIFY (NON-ABBVIE) [Concomitant]
     Indication: DEPRESSION
     Route: 065
  6. ASPIRIN  325MG (NON-ABBVIE) [Concomitant]
     Indication: PRODUCT USED FOR UNKNOWN INDICATION
     Route: 065
  7. FLOMAX (NON-ABBVIE) [Concomitant]
     Indication: PROSTATOMEGALY
     Route: 065
  8. RITALIN  (NON-ABBVIE) [Concomitant]
     Indication: PRODUCT USED FOR UNKNOWN INDICATION
     Route: 065

REACTIONS (3)
  - Depression [Not Recovered/Not Resolved]
  - Extra dose administered [Not Recovered/Not Resolved]
  - Hypophagia [Not Recovered/Not Resolved]

NARRATIVE: CASE EVENT DATE: 201606
